FAERS Safety Report 13341624 (Version 1)
Quarter: 2017Q1

REPORT INFORMATION
  Report Type: Spontaneous
  Country: US (occurrence: US)
  Receive Date: 20170316
  Receipt Date: 20170316
  Transmission Date: 20170428
  Serious: No
  Sender: FDA-Public Use
  Company Number: US-ROCHE-1851578

PATIENT
  Sex: Male

DRUGS (3)
  1. ERIVEDGE [Suspect]
     Active Substance: VISMODEGIB
     Indication: BASAL CELL CARCINOMA
     Dosage: YES
     Route: 065
  2. ERIVEDGE [Suspect]
     Active Substance: VISMODEGIB
     Dosage: YES
     Route: 065
     Dates: start: 20161026
  3. OXYGEN. [Concomitant]
     Active Substance: OXYGEN
     Dosage: 4.0 L 24 HRS 7 DAYS A WEEK
     Route: 065

REACTIONS (1)
  - Headache [Not Recovered/Not Resolved]
